FAERS Safety Report 9734429 (Version 2)
Quarter: 2014Q1

REPORT INFORMATION
  Report Type: Report from Study
  Country: JP (occurrence: JP)
  Receive Date: 20131206
  Receipt Date: 20140219
  Transmission Date: 20141002
  Serious: Yes (Hospitalization)
  Sender: FDA-Public Use
  Company Number: JP-009507513-1312JPN002000

PATIENT
  Age: 63 Year
  Sex: Female

DRUGS (8)
  1. TAPROS [Suspect]
     Indication: GLAUCOMA
     Dosage: 2 GTT, UNK
     Route: 047
     Dates: start: 20130107
  2. TAPROS [Suspect]
     Dosage: 2 GTT, UNK
     Route: 047
     Dates: start: 20130510
  3. HYALURONATE SODIUM [Concomitant]
     Dosage: UNK
     Dates: start: 20130107
  4. CYANOCOBALAMIN [Concomitant]
     Dosage: UNK
     Dates: start: 20130107
  5. URSODIOL [Concomitant]
     Dosage: UNK
     Dates: start: 20130107
  6. SIMVASTATIN [Concomitant]
     Dosage: UNK
     Route: 048
     Dates: start: 20130107, end: 201308
  7. SIMVASTATIN [Concomitant]
     Dosage: UNK
     Route: 048
     Dates: start: 201308
  8. ESTAZOLAM [Concomitant]
     Dosage: UNK
     Dates: start: 20130107

REACTIONS (1)
  - Cholelithiasis [Recovered/Resolved]
